FAERS Safety Report 8160425-8 (Version None)
Quarter: 2012Q1

REPORT INFORMATION
  Report Type: 
  Country: None (occurrence: None)
  Receive Date: 20120223
  Receipt Date: 20120213
  Transmission Date: 20120608
  Serious: Yes (Death, Hospitalization, Other)
  Sender: FDA-Public Use
  Company Number: US-BAXTER-2012BH003844

PATIENT
  Sex: Male

DRUGS (1)
  1. DIANEAL [Suspect]
     Indication: PERITONEAL DIALYSIS
     Route: 033

REACTIONS (5)
  - MYOCARDIAL INFARCTION [None]
  - INFECTIOUS PERITONITIS [None]
  - CHEST PAIN [None]
  - CARDIAC FAILURE [None]
  - CHRONIC RESPIRATORY FAILURE [None]
